FAERS Safety Report 20597568 (Version 1)
Quarter: 2022Q1

REPORT INFORMATION
  Report Type: Spontaneous
  Country: US (occurrence: None)
  Receive Date: 20220314
  Receipt Date: 20220314
  Transmission Date: 20220424
  Serious: No
  Sender: FDA-Public Use
  Company Number: None

PATIENT
  Age: 52 Year
  Sex: Female
  Weight: 59.42 kg

DRUGS (7)
  1. PARAGARD T 380A [Suspect]
     Active Substance: COPPER
     Dates: start: 20150910, end: 20220314
  2. FLUOROMETHOLONE EYEDROPS [Concomitant]
  3. VITAMIN C [Concomitant]
     Active Substance: ASCORBIC ACID
  4. CALCIUM [Concomitant]
     Active Substance: CALCIUM
  5. VITAMINS [Concomitant]
     Active Substance: VITAMINS
  6. DIETARY SUPPLEMENT [Concomitant]
     Active Substance: DIETARY SUPPLEMENT
  7. BIOTIN [Concomitant]
     Active Substance: BIOTIN

REACTIONS (3)
  - Device dislocation [None]
  - Complication of device removal [None]
  - Device breakage [None]

NARRATIVE: CASE EVENT DATE: 20220314
